FAERS Safety Report 6151804-9 (Version None)
Quarter: 2009Q2

REPORT INFORMATION
  Report Type: 
  Country: None (occurrence: None)
  Receive Date: 20090410
  Receipt Date: 20090301
  Transmission Date: 20091009
  Serious: Yes (Other)
  Sender: FDA-Public Use
  Company Number: DK-PFIZER INC-2009192358

PATIENT

DRUGS (5)
  1. TAFIL [Suspect]
     Indication: ANXIETY
  2. TAFIL [Suspect]
     Indication: RESTLESSNESS
  3. TAFIL [Suspect]
     Indication: ALCOHOL WITHDRAWAL SYNDROME
  4. TAFIL [Suspect]
     Indication: WITHDRAWAL SYNDROME
  5. ALCOHOL [Suspect]

REACTIONS (11)
  - ANXIETY [None]
  - DEPRESSION [None]
  - DEREALISATION [None]
  - DISTURBANCE IN ATTENTION [None]
  - EUPHORIC MOOD [None]
  - FEELING ABNORMAL [None]
  - INSOMNIA [None]
  - MEMORY IMPAIRMENT [None]
  - OVERDOSE [None]
  - PARANOIA [None]
  - RESTLESSNESS [None]
